FAERS Safety Report 21325609 (Version 1)
Quarter: 2022Q3

REPORT INFORMATION
  Report Type: Spontaneous
  Country: US (occurrence: None)
  Receive Date: 20220912
  Receipt Date: 20220912
  Transmission Date: 20221026
  Serious: No
  Sender: FDA-Public Use
  Company Number: None

PATIENT
  Age: 76 Year
  Sex: Male
  Weight: 82.5 kg

DRUGS (2)
  1. PEMBROLIZUMAB [Suspect]
     Active Substance: PEMBROLIZUMAB
     Indication: Metastatic malignant melanoma
     Dosage: FREQUENCY : EVERY THREE WEEKS;?
     Route: 042
     Dates: start: 20210203, end: 20220816
  2. BEVACIZUMAB [Suspect]
     Active Substance: BEVACIZUMAB
     Indication: Metastatic malignant melanoma
     Dosage: OTHER QUANTITY : 7.5 MG/KG;?FREQUENCY : EVERY THREE WEEKS;?
     Route: 042
     Dates: start: 20210224, end: 20210428

REACTIONS (5)
  - Oedema peripheral [None]
  - Gastrointestinal haemorrhage [None]
  - Haemoglobin decreased [None]
  - Small intestine carcinoma [None]
  - Iliac artery embolism [None]

NARRATIVE: CASE EVENT DATE: 20220907
